FAERS Safety Report 15261947 (Version 1)
Quarter: 2018Q3

REPORT INFORMATION
  Report Type: Spontaneous
  Country: FR (occurrence: FR)
  Receive Date: 20180809
  Receipt Date: 20180809
  Transmission Date: 20181010
  Serious: Yes (Hospitalization)
  Sender: FDA-Public Use
  Company Number: FR-TEVA-2018-FR-937089

PATIENT
  Age: 65 Year
  Sex: Male
  Weight: 90 kg

DRUGS (8)
  1. EZETROL [Suspect]
     Active Substance: EZETIMIBE
     Dosage: UNKNOWN
     Route: 048
     Dates: end: 20171115
  2. BIPRETERAX (INDAPAMIDE (+) PERINDOPRIL ARGININE) [Concomitant]
     Active Substance: INDAPAMIDE\PERINDOPRIL ARGININE
     Indication: HYPERTENSION
     Dosage: 1 DOSAGE FORMS DAILY;
  3. ATORVASTATIN [Suspect]
     Active Substance: ATORVASTATIN
     Dosage: UNKNOWN
     Route: 065
     Dates: end: 20171115
  4. TENORDATE [Concomitant]
     Active Substance: ATENOLOL\NIFEDIPINE
     Indication: HYPERTENSION
     Dosage: 1 DOSAGE FORMS DAILY;
  5. KARDEGIC [Concomitant]
     Active Substance: ASPIRIN DL-LYSINE
     Indication: CARDIOVASCULAR EVENT PROPHYLAXIS
     Dosage: 160 MILLIGRAM DAILY;
  6. EZETROL [Suspect]
     Active Substance: EZETIMIBE
     Dosage: UNKNOWN
     Route: 048
     Dates: start: 201711
  7. LIPTRUZET [Suspect]
     Active Substance: ATORVASTATIN CALCIUM\EZETIMIBE
     Dosage: 10/80MG
     Route: 048
     Dates: start: 20171115, end: 20171115
  8. ATORVASTATIN [Suspect]
     Active Substance: ATORVASTATIN
     Dosage: UNKNOWN
     Route: 065
     Dates: end: 201711

REACTIONS (1)
  - Hypersensitivity [Unknown]

NARRATIVE: CASE EVENT DATE: 20171115
